FAERS Safety Report 12631800 (Version 2)
Quarter: 2016Q3

REPORT INFORMATION
  Report Type: Spontaneous
  Country: US (occurrence: US)
  Receive Date: 20160808
  Receipt Date: 20160808
  Transmission Date: 20161109
  Serious: No
  Sender: FDA-Public Use
  Company Number: US-BEH-2016061069

PATIENT
  Sex: Female
  Weight: 85 kg

DRUGS (29)
  1. HIZENTRA [Suspect]
     Active Substance: HUMAN IMMUNOGLOBULIN G
     Indication: IMMUNODEFICIENCY COMMON VARIABLE
     Route: 058
     Dates: start: 20140515
  2. LMX [Concomitant]
     Active Substance: LIDOCAINE
  3. SYNTHROID [Concomitant]
     Active Substance: LEVOTHYROXINE SODIUM
  4. FLONASE [Concomitant]
     Active Substance: FLUTICASONE PROPIONATE
  5. CALCIUM [Concomitant]
     Active Substance: CALCIUM
  6. CONCERTA [Concomitant]
     Active Substance: METHYLPHENIDATE HYDROCHLORIDE
  7. VITAMIN D [Concomitant]
     Active Substance: CHOLECALCIFEROL
  8. KLONOPIN [Concomitant]
     Active Substance: CLONAZEPAM
  9. ALBUTEROL. [Concomitant]
     Active Substance: ALBUTEROL
  10. LIDODERM [Concomitant]
     Active Substance: LIDOCAINE
  11. PERCOCET [Concomitant]
     Active Substance: ACETAMINOPHEN\OXYCODONE HYDROCHLORIDE
  12. PROZAC [Concomitant]
     Active Substance: FLUOXETINE HYDROCHLORIDE
  13. PYRIDIUM [Concomitant]
     Active Substance: PHENAZOPYRIDINE
  14. HIZENTRA [Suspect]
     Active Substance: HUMAN IMMUNOGLOBULIN G
     Indication: CHRONIC SINUSITIS
     Route: 058
     Dates: start: 20140515
  15. LIDOCAINE/PRILOCAINE [Concomitant]
     Active Substance: LIDOCAINE\PRILOCAINE
  16. LYRICA [Concomitant]
     Active Substance: PREGABALIN
  17. SINGULAIR [Concomitant]
     Active Substance: MONTELUKAST SODIUM
  18. HYDROXHLORQUINE [Concomitant]
  19. METHOTREXATE. [Concomitant]
     Active Substance: METHOTREXATE
  20. COLACE [Concomitant]
     Active Substance: DOCUSATE SODIUM
  21. ACETAMINOPHEN. [Concomitant]
     Active Substance: ACETAMINOPHEN
  22. DIPHENHYDRAMINE. [Concomitant]
     Active Substance: DIPHENHYDRAMINE
  23. SAVELLA [Concomitant]
     Active Substance: MILNACIPRAN HYDROCHLORIDE
  24. ENBREL [Concomitant]
     Active Substance: ETANERCEPT
  25. RESTASIS [Concomitant]
     Active Substance: CYCLOSPORINE
  26. EPIPEN [Concomitant]
     Active Substance: EPINEPHRINE
  27. CELEBREX [Concomitant]
     Active Substance: CELECOXIB
  28. CYMBALTA [Concomitant]
     Active Substance: DULOXETINE HYDROCHLORIDE
  29. TIZANIDINE. [Concomitant]
     Active Substance: TIZANIDINE

REACTIONS (1)
  - Rash erythematous [Unknown]
